FAERS Safety Report 10210811 (Version 1)
Quarter: 2014Q2

REPORT INFORMATION
  Report Type: Spontaneous
  Country: US (occurrence: None)
  Receive Date: 20140530
  Receipt Date: 20140530
  Transmission Date: 20141212
  Serious: No
  Sender: FDA-Public Use
  Company Number: None

PATIENT
  Sex: Female
  Weight: 63.5 kg

DRUGS (1)
  1. MEDROL [Suspect]
     Indication: POLYMYALGIA RHEUMATICA
     Dosage: FROM 5 TABLETS TO 1 TABLET, DAILY, MOUTH
     Route: 048
     Dates: start: 201308

REACTIONS (2)
  - Alopecia [None]
  - Product label issue [None]
